FAERS Safety Report 20383438 (Version 2)
Quarter: 2022Q1

REPORT INFORMATION
  Report Type: Spontaneous
  Country: GB (occurrence: GB)
  Receive Date: 20220127
  Receipt Date: 20220128
  Transmission Date: 20220423
  Serious: Yes (Life-Threatening)
  Sender: FDA-Public Use
  Company Number: None

PATIENT
  Age: 59 Year
  Sex: Male
  Weight: 87 kg

DRUGS (2)
  1. PICATO [Suspect]
     Active Substance: INGENOL MEBUTATE
     Indication: Actinic keratosis
     Dosage: PRESCRIBED TWICE , OCTOBER 2017 AND MARCH 2018
     Route: 062
     Dates: start: 201710
  2. PICATO [Suspect]
     Active Substance: INGENOL MEBUTATE
     Indication: Actinic keratosis
     Dosage: PRESCRIBED TWICE , OCTOBER 2017 AND MARCH 2018
     Route: 062
     Dates: start: 201710

REACTIONS (2)
  - Skin cancer metastatic [Not Recovered/Not Resolved]
  - Inappropriate schedule of product administration [Unknown]

NARRATIVE: CASE EVENT DATE: 20211103
